FAERS Safety Report 9406267 (Version 1)
Quarter: 2013Q3

REPORT INFORMATION
  Report Type: Spontaneous
  Country: US (occurrence: US)
  Receive Date: 20130717
  Receipt Date: 20130717
  Transmission Date: 20140515
  Serious: No
  Sender: FDA-Public Use
  Company Number: US-TEVA-411849USA

PATIENT
  Age: 31 Year
  Sex: Female
  Weight: 63.56 kg

DRUGS (1)
  1. PARAGARD 380A [Suspect]
     Indication: CONTRACEPTION
     Route: 015
     Dates: start: 20130401, end: 20130611

REACTIONS (4)
  - Metrorrhagia [Unknown]
  - Dysmenorrhoea [Unknown]
  - Vaginal odour [Unknown]
  - Bacterial vaginosis [Not Recovered/Not Resolved]
